FAERS Safety Report 24453696 (Version 2)
Quarter: 2024Q4

REPORT INFORMATION
  Report Type: Report from Study
  Country: US (occurrence: US)
  Receive Date: 20241017
  Receipt Date: 20241018
  Transmission Date: 20250114
  Serious: No
  Sender: ROCHE
  Company Number: US-ROCHE-3326014

PATIENT
  Age: 33 Year
  Sex: Female
  Weight: 94.9 kg

DRUGS (4)
  1. RITUXAN [Suspect]
     Active Substance: RITUXIMAB
     Indication: Overlap syndrome
     Dosage: DAY1 AND DAY 15 EVERY 180 DAYS?ANTICIPATED DATE OF TREATMENT REPORTED ON 09/MAY/2024.? FREQUENCY TEX
     Route: 042
     Dates: start: 202103
  2. RITUXAN [Suspect]
     Active Substance: RITUXIMAB
     Indication: Interstitial lung disease
  3. RITUXAN [Suspect]
     Active Substance: RITUXIMAB
     Indication: Systemic scleroderma
  4. RITUXAN [Suspect]
     Active Substance: RITUXIMAB
     Indication: Immunology test abnormal

REACTIONS (2)
  - Off label use [Unknown]
  - No adverse event [Unknown]

NARRATIVE: CASE EVENT DATE: 20210301
